FAERS Safety Report 22638822 (Version 2)
Quarter: 2023Q2

REPORT INFORMATION
  Report Type: Report from Study
  Country: US (occurrence: US)
  Receive Date: 20230626
  Receipt Date: 20230626
  Transmission Date: 20230722
  Serious: Yes (Other)
  Sender: FDA-Public Use
  Company Number: US-ABBVIE-5302882

PATIENT
  Age: 62 Year
  Sex: Female

DRUGS (1)
  1. HUMIRA [Suspect]
     Active Substance: ADALIMUMAB
     Indication: Crohn^s disease
     Dosage: FORM STRENGTH: 40 MG/CITRATE FREE
     Route: 058

REACTIONS (7)
  - Pelvic fracture [Unknown]
  - Oedema [Unknown]
  - Sensation of blood flow [Unknown]
  - Muscle spasms [Unknown]
  - Abdominal distension [Unknown]
  - Animal bite [Unknown]
  - Hip surgery [Unknown]

NARRATIVE: CASE EVENT DATE: 20230601
